FAERS Safety Report 22608308 (Version 1)
Quarter: 2023Q2

REPORT INFORMATION
  Report Type: Spontaneous
  Country: ES (occurrence: ES)
  Receive Date: 20230616
  Receipt Date: 20230616
  Transmission Date: 20230722
  Serious: Yes (Life-Threatening, Hospitalization, Other)
  Sender: FDA-Public Use
  Company Number: None

PATIENT
  Age: 42 Year
  Sex: Male

DRUGS (6)
  1. ZOLPIDEM TARTRATE [Interacting]
     Active Substance: ZOLPIDEM TARTRATE
     Indication: Suicidal ideation
     Dosage: 100 MG, 1X: 10 TABLETS; 100MG; 1 TOTAL
     Route: 048
     Dates: start: 20230517, end: 20230517
  2. ZOLPIDEM TARTRATE [Interacting]
     Active Substance: ZOLPIDEM TARTRATE
     Indication: Mixed anxiety and depressive disorder
     Dosage: 10 MG, QD
     Route: 048
     Dates: end: 2023
  3. VENLAFAXINE HYDROCHLORIDE [Interacting]
     Active Substance: VENLAFAXINE HYDROCHLORIDE
     Indication: Suicidal ideation
     Dosage: 10 G, 1X: OVERDOSE 40 TABLETS
     Route: 048
     Dates: start: 20230517, end: 20230517
  4. VENLAFAXINE HYDROCHLORIDE [Interacting]
     Active Substance: VENLAFAXINE HYDROCHLORIDE
     Indication: Mixed anxiety and depressive disorder
     Dosage: 225 MG, QD
     Route: 048
     Dates: end: 2023
  5. LAMOTRIGINE [Interacting]
     Active Substance: LAMOTRIGINE
     Indication: Suicidal ideation
     Dosage: 2000 MG, 1X: 20 TABLETS OF 100MG (OVERDOSE)
     Route: 048
     Dates: start: 20230517, end: 20230517
  6. LAMOTRIGINE [Interacting]
     Active Substance: LAMOTRIGINE
     Indication: Mixed anxiety and depressive disorder
     Dosage: 100 MG, QD
     Dates: end: 2023

REACTIONS (3)
  - Pneumonia aspiration [Recovered/Resolved]
  - Rhabdomyolysis [Recovering/Resolving]
  - Coma [Recovered/Resolved]

NARRATIVE: CASE EVENT DATE: 20230101
